FAERS Safety Report 8854420 (Version 2)
Quarter: 2012Q4

REPORT INFORMATION
  Report Type: 
  Country: US (occurrence: US)
  Receive Date: 20121023
  Receipt Date: 20121211
  Transmission Date: 20130627
  Serious: Yes (Other)
  Sender: FDA-Public Use
  Company Number: US-PFIZER INC-2012264647

PATIENT
  Age: 59 Year
  Sex: Female
  Weight: 49.43 kg

DRUGS (3)
  1. PRISTIQ [Suspect]
     Indication: MOOD SWINGS
     Dosage: 50 mg, 1x/day
     Route: 048
     Dates: start: 201202, end: 20121021
  2. ARMOUR THYROID [Concomitant]
     Indication: HYPOTHYROIDISM
     Dosage: UNK
  3. HYDROCHLOROTHIAZIDE [Concomitant]
     Dosage: UNK

REACTIONS (3)
  - Hypertension [Recovered/Resolved]
  - Tri-iodothyronine decreased [Recovered/Resolved]
  - Malaise [Recovered/Resolved]
